FAERS Safety Report 11327528 (Version 2)
Quarter: 2015Q3

REPORT INFORMATION
  Report Type: Report from Study
  Country: US (occurrence: US)
  Receive Date: 20150731
  Receipt Date: 20150817
  Transmission Date: 20151125
  Serious: Yes (Death)
  Sender: FDA-Public Use
  Company Number: US-ACTELION-A-US2015-121851

PATIENT
  Age: 50 Year
  Sex: Female

DRUGS (1)
  1. VENTAVIS [Suspect]
     Active Substance: ILOPROST
     Indication: PULMONARY HYPERTENSION
     Dosage: 6 TIMES A DAY
     Route: 055
     Dates: start: 20121106, end: 20150718

REACTIONS (2)
  - Pulmonary fibrosis [Fatal]
  - Sarcoidosis [Fatal]
